FAERS Safety Report 7032790-6 (Version None)
Quarter: 2010Q4

REPORT INFORMATION
  Report Type: 
  Country: None (occurrence: None)
  Receive Date: 20101007
  Receipt Date: 20091013
  Transmission Date: 20110411
  Serious: Yes (Hospitalization)
  Sender: FDA-Public Use
  Company Number: ZA-SANOFI-AVENTIS-200919093GDDC

PATIENT
  Age: 79 Year
  Sex: Male
  Weight: 68.4 kg

DRUGS (20)
  1. AFLIBERCEPT [Suspect]
     Dosage: DOSE UNIT: 6 MG/KG
     Route: 042
     Dates: start: 20090811, end: 20090811
  2. AFLIBERCEPT [Suspect]
     Dosage: DOSE UNIT: 6 MG/KG
     Route: 042
     Dates: start: 20090625, end: 20090625
  3. DOCETAXEL [Suspect]
     Dosage: DOSE UNIT: 75 MG/M**2
     Route: 042
     Dates: start: 20090811, end: 20090811
  4. DOCETAXEL [Suspect]
     Dosage: DOSE UNIT: 75 MG/M**2
     Route: 042
     Dates: start: 20090625, end: 20090625
  5. PREDNISONE [Suspect]
     Dosage: DOSE UNIT: 5 MG
     Route: 048
     Dates: start: 20090625, end: 20090811
  6. ZOLADEX [Concomitant]
     Indication: HORMONE REPLACEMENT THERAPY
     Dosage: DOSE AS USED: UNK
     Dates: start: 20070419
  7. CRESTOR [Concomitant]
     Dosage: DOSE AS USED: UNK
     Dates: start: 20060101
  8. MICARDIS [Concomitant]
     Dosage: DOSE AS USED: UNK
     Dates: start: 20090525
  9. CONCOR [Concomitant]
     Dosage: DOSE AS USED: UNK
     Dates: start: 20060101
  10. DISPRIN [Concomitant]
     Dosage: DOSE AS USED: UNK
     Dates: start: 20060701
  11. ELTROXIN ^GLAXO^ [Concomitant]
     Dosage: DOSE AS USED: UNK
     Dates: start: 19790101
  12. WARFARIN SODIUM [Concomitant]
     Dosage: DOSE AS USED: UNK
     Dates: start: 20080601
  13. PROCYDIN [Concomitant]
     Dosage: DOSE AS USED: UNK
  14. VITAMIN B COMPLEX CAP [Concomitant]
     Dosage: DOSE AS USED: UNK
  15. FOLIC ACID [Concomitant]
     Dosage: DOSE AS USED: UNK
  16. FISH OIL [Concomitant]
     Dosage: DOSE AS USED: UNK
  17. ZAMANON [Concomitant]
     Dosage: DOSE AS USED: UNK
     Dates: start: 20090626
  18. LANSOPRAZOLE [Concomitant]
     Dosage: DOSE AS USED: UNK
     Dates: start: 20090626
  19. CLOPAMON ^INTRAMED^ [Concomitant]
     Dosage: DOSE AS USED: UNK
     Dates: start: 20090626
  20. CARVEDILOL [Concomitant]
     Dosage: DOSE AS USED: UNK
     Dates: start: 20090629

REACTIONS (1)
  - URETHRAL STENOSIS [None]
